FAERS Safety Report 23834916 (Version 1)
Quarter: 2024Q2

REPORT INFORMATION
  Report Type: Spontaneous
  Country: GB (occurrence: GB)
  Receive Date: 20240509
  Receipt Date: 20240509
  Transmission Date: 20240716
  Serious: Yes (Death, Other)
  Sender: FDA-Public Use
  Company Number: GB-ABBVIE-5739784

PATIENT
  Age: 88 Year
  Sex: Male

DRUGS (2)
  1. AZACITIDINE [Suspect]
     Active Substance: AZACITIDINE
     Indication: Acute myeloid leukaemia
     Route: 050
  2. VENETOCLAX [Suspect]
     Active Substance: VENETOCLAX
     Indication: Acute myeloid leukaemia
     Dosage: VENETOCLAX WAS STOPPED AT DAY 12; ;
     Route: 050

REACTIONS (4)
  - Death [Fatal]
  - Neutropenia [Unknown]
  - Gastrointestinal disorder [Unknown]
  - Diastolic dysfunction [Unknown]
